FAERS Safety Report 6623427-6 (Version None)
Quarter: 2010Q1

REPORT INFORMATION
  Report Type: 
  Country: None (occurrence: None)
  Receive Date: 20100305
  Receipt Date: 20100222
  Transmission Date: 20100710
  Serious: Yes (Other)
  Sender: FDA-Public Use
  Company Number: B0636627A

PATIENT
  Age: 60 Year
  Sex: Male

DRUGS (4)
  1. METRONIDAZOLE [Suspect]
     Indication: HEPATITIS C
     Dosage: 1.5 MG / PER DAY
  2. SPIRONOLACTONE [Concomitant]
  3. LACTULOSE [Concomitant]
  4. VITAMIN K TAB [Concomitant]

REACTIONS (4)
  - DRUG TOXICITY [None]
  - ENCEPHALOPATHY [None]
  - NEUROTOXICITY [None]
  - VASOGENIC CEREBRAL OEDEMA [None]
